FAERS Safety Report 9839095 (Version 1)
Quarter: 2014Q1

REPORT INFORMATION
  Report Type: Spontaneous
  Country: JP (occurrence: JP)
  Receive Date: 20140123
  Receipt Date: 20140123
  Transmission Date: 20141002
  Serious: Yes (Other)
  Sender: FDA-Public Use
  Company Number: PHHY2014JP003978

PATIENT
  Sex: 0
  Weight: 2.26 kg

DRUGS (9)
  1. CICLOSPORIN [Suspect]
     Dosage: UNK
     Route: 064
     Dates: end: 199606
  2. CICLOSPORIN [Suspect]
     Dosage: MATERNAL DOSE 100 MG, PER DAY
     Route: 064
  3. CICLOSPORIN [Suspect]
     Dosage: MATERNAL DOSE 200 MG, PER DAY
     Route: 064
  4. PREDNISOLONE [Suspect]
     Dosage: UNK
     Route: 064
     Dates: start: 199002
  5. PREDNISOLONE [Suspect]
     Dosage: MATERNAL DOSE 15 MG, DAILY
     Route: 064
  6. PREDNISOLONE [Suspect]
     Dosage: MATERNAL DOSE 40 MG, PER DAY
     Route: 064
  7. PREDNISOLONE [Suspect]
     Dosage: MATERNAL DOSE 30 MG, PER DAY
     Route: 064
  8. PARAMETHASONE [Suspect]
     Dosage: MATERNAL DOSE 6 MG, DAILY
     Route: 064
  9. ASPIRIN [Concomitant]

REACTIONS (2)
  - Low birth weight baby [Unknown]
  - Foetal exposure during pregnancy [Unknown]
